FAERS Safety Report 7912692-0 (Version None)
Quarter: 2011Q4

REPORT INFORMATION
  Report Type: 
  Country: None (occurrence: None)
  Receive Date: 20111114
  Receipt Date: 20111110
  Transmission Date: 20120403
  Serious: No
  Sender: FDA-Public Use
  Company Number: US-TEVA-309087USA

PATIENT
  Sex: Female
  Weight: 33.596 kg

DRUGS (4)
  1. ADDERALL 5 [Concomitant]
     Indication: ATTENTION DEFICIT/HYPERACTIVITY DISORDER
     Dosage: 10 MILLIGRAM;
     Route: 048
     Dates: start: 20091101
  2. LEXAPRO [Concomitant]
     Indication: DEPRESSION
     Dosage: 15 MILLIGRAM;
     Route: 048
     Dates: start: 20091101
  3. PLAN B ONE-STEP [Suspect]
     Indication: POST COITAL CONTRACEPTION
     Dosage: 1.5 MILLIGRAM;
     Route: 048
     Dates: start: 20111107, end: 20111107
  4. PLAN B ONE-STEP [Suspect]
     Dosage: 1.5 MILLIGRAM;
     Route: 048
     Dates: start: 20111109, end: 20111109

REACTIONS (1)
  - BLOOD URINE PRESENT [None]
